FAERS Safety Report 5593089-8 (Version None)
Quarter: 2008Q1

REPORT INFORMATION
  Report Type: 
  Country: None (occurrence: None)
  Receive Date: 20080116
  Receipt Date: 20080109
  Transmission Date: 20080703
  Serious: Yes (Other)
  Sender: FDA-Public Use
  Company Number: US-BAYER-200712864BCC

PATIENT
  Age: 52 Year
  Sex: Male
  Weight: 86 kg

DRUGS (4)
  1. ASPIRIN [Suspect]
     Indication: DRUG USE FOR UNKNOWN INDICATION
     Dosage: TOTAL DAILY DOSE: 81 MG  UNIT DOSE: 81 MG
     Route: 048
     Dates: start: 20070101, end: 20070831
  2. LIPITOR [Concomitant]
  3. WELLBUTRIN [Concomitant]
  4. SHOAL'S PATCH [Concomitant]
     Dates: start: 20070801

REACTIONS (1)
  - DEAFNESS UNILATERAL [None]
